FAERS Safety Report 24181266 (Version 1)
Quarter: 2024Q3

REPORT INFORMATION
  Report Type: Spontaneous
  Country: US (occurrence: US)
  Receive Date: 20240807
  Receipt Date: 20240807
  Transmission Date: 20241016
  Serious: Yes (Hospitalization)
  Sender: BRISTOL MYERS SQUIBB
  Company Number: US-BRISTOL-MYERS SQUIBB COMPANY-2024-123879

PATIENT
  Age: 53 Year
  Sex: Female
  Weight: 113.85 kg

DRUGS (2)
  1. REVLIMID [Suspect]
     Active Substance: LENALIDOMIDE
     Indication: Plasma cell myeloma
     Dosage: FREQUENCY: TAKE 1 CAPSULE (5 MG) BY MOUTH EVERY OTHER DAY FOR 28 DAYS. ALTERNATE WITH 10 MG CAPS
     Route: 048
     Dates: start: 20210901
  2. REVLIMID [Suspect]
     Active Substance: LENALIDOMIDE
     Dosage: FREQUENCY: TAKE 1 CAPSULE (10 MG) BY MOUTH EVERY OTHER DAY FOR 28 DAYS. ALTERNATE WITH 5 MG CAPS
     Route: 048
     Dates: start: 20210901

REACTIONS (2)
  - Hospitalisation [Recovered/Resolved]
  - Off label use [Unknown]

NARRATIVE: CASE EVENT DATE: 20240701
